FAERS Safety Report 5657670-X (Version None)
Quarter: 2008Q1

REPORT INFORMATION
  Report Type: 
  Country: None (occurrence: None)
  Receive Date: 20080305
  Receipt Date: 20080215
  Transmission Date: 20080703
  Serious: Yes (Hospitalization)
  Sender: FDA-Public Use
  Company Number: DSA_31508_2008

PATIENT
  Sex: Male

DRUGS (65)
  1. LORAZEPAM [Suspect]
     Indication: DRUG USE FOR UNKNOWN INDICATION
     Dosage: DF ORAL
     Route: 048
     Dates: start: 20021129, end: 20051214
  2. PANTOPRAZOLE SODIUM [Suspect]
     Indication: DRUG USE FOR UNKNOWN INDICATION
     Dosage: DF ORAL, (40 MG, QD ORAL)
     Route: 048
     Dates: start: 20021128, end: 20021214
  3. PANTOPRAZOLE SODIUM [Suspect]
     Indication: DRUG USE FOR UNKNOWN INDICATION
     Dosage: DF ORAL, (40 MG, QD ORAL)
     Route: 048
     Dates: start: 20021102
  4. ASPIRIN [Suspect]
     Indication: DRUG USE FOR UNKNOWN INDICATION
     Dosage: DF (DF ORAL) , (100 MG QD ORAL)
     Route: 048
     Dates: start: 19980101, end: 20020101
  5. ASPIRIN [Suspect]
     Indication: DRUG USE FOR UNKNOWN INDICATION
     Dosage: DF (DF ORAL) , (100 MG QD ORAL)
     Route: 048
     Dates: start: 20021128, end: 20021214
  6. ASPIRIN [Suspect]
     Indication: DRUG USE FOR UNKNOWN INDICATION
     Dosage: DF (DF ORAL) , (100 MG QD ORAL)
     Route: 048
     Dates: start: 20021225
  7. ALLOPURINOL [Suspect]
     Indication: DRUG USE FOR UNKNOWN INDICATION
     Dosage: DF, (100 MG QD ORAL)
     Route: 048
     Dates: start: 20021101
  8. ALLOPURINOL [Suspect]
     Indication: DRUG USE FOR UNKNOWN INDICATION
     Dosage: DF, (100 MG QD ORAL)
     Route: 048
     Dates: start: 20021225
  9. AMPHOTERICIN B [Suspect]
     Indication: DRUG USE FOR UNKNOWN INDICATION
     Dosage: 1 DF TID DF, (1 DF BID 1 DF)
     Dates: start: 20021129, end: 20021205
  10. BEPANTOL (DEXPANTHENOL) [Suspect]
     Indication: DRUG USE FOR UNKNOWN INDICATION
     Dosage: DF TOPICAL
     Route: 061
     Dates: start: 20021214, end: 20021224
  11. BERIGLOBIN  (IMMUNGLOBIN HUMAN NORMAL) [Suspect]
     Indication: DRUG USE FOR UNKNOWN INDICATION
     Dosage: DF INTRAMUSCULAR
     Route: 030
     Dates: start: 20021212, end: 20021214
  12. LACTULOSE [Suspect]
     Indication: DRUG USE FOR UNKNOWN INDICATION
     Dosage: DF ORAL
     Route: 048
     Dates: start: 20021218, end: 20021226
  13. CLINOMEL (CLIMOMEL - AMINO ACIDS / CARBOHYDRATES/ MINERALS/ VITAMINS) [Suspect]
     Indication: DRUG USE FOR UNKNOWN INDICATION
     Dosage: DF INTRAVENOUS (NOT OTHERWISE SPECIFIED)
     Route: 042
     Dates: start: 20021213, end: 20021222
  14. CEFUROXIME [Suspect]
     Indication: DRUG USE FOR UNKNOWN INDICATION
     Dosage: DF INTRAVENOUS (NOT OTHERWISE SPECIFIED)
     Route: 042
     Dates: start: 20021215, end: 20021221
  15. DECORTIN (PREDNISONE) [Suspect]
     Indication: DRUG USE FOR UNKNOWN INDICATION
     Dosage: 70 MG QD, 25 MG OD, 75 MG QD ORAL, 90 MG QD ORAL
     Route: 048
     Dates: start: 20021202
  16. DECORTIN (PREDNISONE) [Suspect]
     Indication: DRUG USE FOR UNKNOWN INDICATION
     Dosage: 70 MG QD, 25 MG OD, 75 MG QD ORAL, 90 MG QD ORAL
     Route: 048
     Dates: start: 20021214
  17. DERMATOP [Suspect]
     Indication: DRUG USE FOR UNKNOWN INDICATION
     Dosage: DF TOPICAL, DF TOPICAL
     Route: 061
     Dates: start: 20021128, end: 20021130
  18. DERMATOP [Suspect]
     Indication: DRUG USE FOR UNKNOWN INDICATION
     Dosage: DF TOPICAL, DF TOPICAL
     Route: 061
     Dates: start: 20021202, end: 20021214
  19. DEXAMETHASONE TAB [Suspect]
     Indication: DRUG USE FOR UNKNOWN INDICATION
     Dosage: 8 MG QD ORAL, 4 MG TID ORAL
     Route: 048
     Dates: start: 20020101, end: 20021202
  20. DEXAMETHASONE TAB [Suspect]
     Indication: DRUG USE FOR UNKNOWN INDICATION
     Dosage: 8 MG QD ORAL, 4 MG TID ORAL
     Route: 048
     Dates: start: 20021111
  21. DIFLUCAN [Suspect]
     Indication: DRUG USE FOR UNKNOWN INDICATION
     Dosage: DF INTRAVENOUS (NOT OTHERWISE SPECIFIED), DF ORAL
     Route: 042
     Dates: start: 20021206, end: 20021214
  22. DIFLUCAN [Suspect]
     Indication: DRUG USE FOR UNKNOWN INDICATION
     Dosage: DF INTRAVENOUS (NOT OTHERWISE SPECIFIED), DF ORAL
     Route: 042
     Dates: start: 20021215, end: 20021220
  23. DIAZEPAM [Suspect]
     Indication: DRUG USE FOR UNKNOWN INDICATION
     Dosage: DF INTRAVENOUS (NOT OTHERWISE SPECIFIED)
     Route: 042
     Dates: start: 20021215, end: 20021218
  24. FENISTIL (DIMETINDENCE MALEATE) [Suspect]
     Indication: PRURITUS
     Dosage: 2 DF TID 2 DF ORAL, 2 DF BID 2 DF ORAL
     Route: 048
     Dates: start: 20020101, end: 20021214
  25. FENISTIL (DIMETINDENCE MALEATE) [Suspect]
     Indication: PRURITUS
     Dosage: 2 DF TID 2 DF ORAL, 2 DF BID 2 DF ORAL
     Route: 048
     Dates: start: 20021127
  26. DEXAMETHASONE [Suspect]
     Indication: DRUG USE FOR UNKNOWN INDICATION
     Dosage: 8 MG BID INTRAVENOUS (NOT OTHERWISE SPECIFIED)
     Route: 042
     Dates: start: 20021215, end: 20021218
  27. FRAXIPARIN (HEPARIN-FRACTION) [Suspect]
     Indication: DRUG USE FOR UNKNOWN INDICATION
     Dosage: DF SUBCUTANEOUS
     Route: 058
     Dates: start: 20021216, end: 20021222
  28. GLYCEROL 2.6% [Suspect]
     Indication: DRUG USE FOR UNKNOWN INDICATION
     Dosage: 10 ML QD ORAL, 10 ML TID ORAL
     Route: 048
     Dates: end: 20021202
  29. GLYCEROL 2.6% [Suspect]
     Indication: DRUG USE FOR UNKNOWN INDICATION
     Dosage: 10 ML QD ORAL, 10 ML TID ORAL
     Route: 048
     Dates: start: 20021113
  30. JONOSTERIL /00351401/ (JONOSTERIL - CALCIUM ACETATE/MAGNESIUM ACETATE/ [Suspect]
     Indication: DRUG USE FOR UNKNOWN INDICATION
     Dosage: DF INTRAVENOUS (NOT OTHERWISE SPECIFIED)
     Route: 042
     Dates: start: 20021215, end: 20021216
  31. LASIX [Suspect]
     Indication: DRUG USE FOR UNKNOWN INDICATION
     Dosage: DF INTRAVENOUS (NOT OTHERWISE SPECIFIED), DF ORAL
     Route: 042
     Dates: start: 20021215, end: 20021219
  32. LASIX [Suspect]
     Indication: DRUG USE FOR UNKNOWN INDICATION
     Dosage: DF INTRAVENOUS (NOT OTHERWISE SPECIFIED), DF ORAL
     Route: 042
     Dates: start: 20021220, end: 20021222
  33. LINOLA-FETT /00710501/ (LINOLA-FETT - BETACAROTENE/COLECALCIFEROL/LINO [Suspect]
     Indication: DRUG USE FOR UNKNOWN INDICATION
     Dosage: DF TOPICAL
     Route: 061
     Dates: start: 20021220, end: 20021226
  34. MANNITOL [Suspect]
     Indication: DRUG USE FOR UNKNOWN INDICATION
     Dosage: DF ORAL,  1 DF TID 1 DF ORAL
     Route: 048
     Dates: start: 20020101, end: 20021214
  35. MANNITOL [Suspect]
     Indication: DRUG USE FOR UNKNOWN INDICATION
     Dosage: DF ORAL,  1 DF TID 1 DF ORAL
     Route: 048
     Dates: start: 20021215
  36. MAGNESIUM HYDROXIDE TAB [Suspect]
     Indication: DRUG USE FOR UNKNOWN INDICATION
     Dosage: 1 DF BID 1 INTRAVENOUS (NOT OTHERWISE SPECIFIED)
     Route: 042
     Dates: start: 20021128, end: 20021220
  37. MORPHINE [Suspect]
     Indication: DRUG USE FOR UNKNOWN INDICATION
     Dosage: 1 DF TID INTRAVENOUS (NOT OTHERWISE SPECIFIED)
     Route: 042
     Dates: start: 20021215, end: 20021220
  38. NORVASC [Suspect]
     Dosage: DF ORAL, 5 MG QD ORAL
     Route: 048
     Dates: start: 20020101, end: 20021214
  39. NORVASC [Suspect]
     Dosage: DF ORAL, 5 MG QD ORAL
     Route: 048
     Dates: start: 20021101
  40. MORPHINE SULFATE [Suspect]
     Indication: DRUG USE FOR UNKNOWN INDICATION
     Dosage: 1 DF TID 1 DF ORAL
     Route: 048
     Dates: start: 20021221, end: 20021226
  41. CEFPODOXIME PROXETIL [Suspect]
     Indication: DRUG USE FOR UNKNOWN INDICATION
     Dosage: 20 ML BID ORAL
     Route: 048
     Dates: start: 20021202, end: 20021214
  42. TEPILTA  (ALUMINUM  HYDROXIDE/MAGNESIUM HYDROXIDE/OXETACAINE) [Suspect]
     Indication: DRUG USE FOR UNKNOWN INDICATION
     Dosage: 1 DF TID 1 DF ORAL, 1 DF BID 1 DF ORAL
     Route: 048
     Dates: start: 20021128, end: 20021214
  43. TEPILTA  (ALUMINUM  HYDROXIDE/MAGNESIUM HYDROXIDE/OXETACAINE) [Suspect]
     Indication: DRUG USE FOR UNKNOWN INDICATION
     Dosage: 1 DF TID 1 DF ORAL, 1 DF BID 1 DF ORAL
     Route: 048
     Dates: start: 20021129
  44. PHENYTOIN [Suspect]
     Indication: DRUG USE FOR UNKNOWN INDICATION
     Dosage: 1 DF BID 1 DF ORAL, 1 DF TID 1 DF ORAL
     Route: 048
     Dates: start: 20021128, end: 20021214
  45. PHENYTOIN [Suspect]
     Indication: DRUG USE FOR UNKNOWN INDICATION
     Dosage: 1 DF BID 1 DF ORAL, 1 DF TID 1 DF ORAL
     Route: 048
     Dates: start: 20021113
  46. POTASSIUM CHLORIDE [Suspect]
     Indication: DRUG USE FOR UNKNOWN INDICATION
     Dosage: 1 DF BID 1 DF INTRAVNEOUS (NOT OTHERWISE SPECIFIED)
     Route: 042
     Dates: start: 20021212, end: 20021218
  47. PLAVIX [Suspect]
     Indication: DRUG USE FOR UNKNOWN INDICATION
     Dosage: 75 MG QD ORAL, DF ORAL
     Route: 048
     Dates: start: 20021128, end: 20021214
  48. PLAVIX [Suspect]
     Indication: DRUG USE FOR UNKNOWN INDICATION
     Dosage: 75 MG QD ORAL, DF ORAL
     Route: 048
     Dates: start: 20021029
  49. PREDNISOLONE [Suspect]
     Indication: DRUG USE FOR UNKNOWN INDICATION
     Dosage: 150 MG QD INTRAVENOUS (NOT OTHERWISE SPECIFIED); 200 MG QD INTRAVENOUS (NOT OTHERWISE SPECIFIED)
     Route: 042
     Dates: start: 20020101, end: 20021220
  50. PREDNISOLONE [Suspect]
     Indication: DRUG USE FOR UNKNOWN INDICATION
     Dosage: 150 MG QD INTRAVENOUS (NOT OTHERWISE SPECIFIED); 200 MG QD INTRAVENOUS (NOT OTHERWISE SPECIFIED)
     Route: 042
     Dates: start: 20021217
  51. FORTIMEL (PROTEINS) [Suspect]
     Indication: DRUG USE FOR UNKNOWN INDICATION
     Dosage: DF ORAL
     Route: 048
     Dates: start: 20021206, end: 20021224
  52. RANITIDINE HCL [Suspect]
     Indication: DRUG USE FOR UNKNOWN INDICATION
     Dosage: DF INTRAVENOUS (NOT OTHERWISE SPECIFIED)
     Route: 042
     Dates: start: 20021215, end: 20021219
  53. SODIUM CHLORIDE [Suspect]
     Indication: DRUG USE FOR UNKNOWN INDICATION
     Dosage: 1 DF BID 1 DR INTRAVENOUS (NOT OTHERWISE SPECIFIED)
     Route: 042
     Dates: start: 20021212, end: 20021218
  54. SCOPOLAMINE [Suspect]
     Indication: DRUG USE FOR UNKNOWN INDICATION
     Dosage: DF SUBCUTANEOUS
     Route: 058
     Dates: start: 20021215, end: 20021217
  55. SODIUM ACETATE [Suspect]
     Indication: DRUG USE FOR UNKNOWN INDICATION
     Dosage: 1 DF BID 1 DF INTRAVENOUS (NOT OTHERWISE SPECIFIED)
     Route: 042
     Dates: start: 20021212, end: 20021218
  56. ATORVASTATIN CALCIUM [Suspect]
     Indication: DRUG USE FOR UNKNOWN INDICATION
     Dosage: DF ORAL, 40 MG QD ORAL
     Route: 048
     Dates: start: 20020101, end: 20031203
  57. ATORVASTATIN CALCIUM [Suspect]
     Indication: DRUG USE FOR UNKNOWN INDICATION
     Dosage: DF ORAL, 40 MG QD ORAL
     Route: 048
     Dates: start: 20021101
  58. TEGRETOL [Suspect]
     Indication: DRUG USE FOR UNKNOWN INDICATION
     Dosage: 1 DF TID ORAL
     Dates: start: 20021223
  59. BUPRENORPHINE HCL [Suspect]
     Indication: DRUG USE FOR UNKNOWN INDICATION
     Dosage: 2 DF QD 1 DF ORAL)
     Route: 048
     Dates: start: 20021213
  60. VITADRAL (RETINOL PALMITATE) [Suspect]
     Indication: DRUG USE FOR UNKNOWN INDICATION
     Dosage: 4 DF QID 4 DF ORAL, 6 DF QID 6 DF ORAL
     Route: 048
     Dates: start: 20021201, end: 20021214
  61. VITADRAL (RETINOL PALMITATE) [Suspect]
     Indication: DRUG USE FOR UNKNOWN INDICATION
     Dosage: 4 DF QID 4 DF ORAL, 6 DF QID 6 DF ORAL
     Route: 048
     Dates: start: 20021203
  62. XYLOCAINE [Suspect]
     Indication: DRUG USE FOR UNKNOWN INDICATION
     Dosage: DF BUCCAL
     Route: 002
     Dates: start: 20021205, end: 20021224
  63. THOMAEJONIN [Suspect]
     Indication: DRUG USE FOR UNKNOWN INDICATION
     Dosage: 2 DF QD INTRAVENOUS (NOT OTHERWISE SPECIFIED)
     Route: 042
     Dates: start: 20021212, end: 20021218
  64. ZICKAUHER [Suspect]
     Indication: DRUG USE FOR UNKNOWN INDICATION
     Dosage: DF, DF
     Dates: start: 20021204, end: 20021224
  65. ZICKAUHER [Suspect]
     Indication: DRUG USE FOR UNKNOWN INDICATION
     Dosage: DF, DF
     Dates: start: 20021128, end: 20021230

REACTIONS (3)
  - BRONCHITIS [None]
  - STEVENS-JOHNSON SYNDROME [None]
  - TOXIC EPIDERMAL NECROLYSIS [None]
